FAERS Safety Report 8429651 (Version 7)
Quarter: 2013Q3

REPORT INFORMATION
  Report Type: Spontaneous
  Country: US (occurrence: US)
  Receive Date: 20120227
  Receipt Date: 20130731
  Transmission Date: 20140515
  Serious: Yes (Disabling, Other)
  Sender: FDA-Public Use
  Company Number: US-ASTRAZENECA-2011SE78597

PATIENT
  Age: 52 Year
  Sex: Male

DRUGS (5)
  1. NEXIUM [Suspect]
     Indication: BARRETT^S OESOPHAGUS
     Route: 048
     Dates: start: 2004
  2. PRILOSEC [Suspect]
     Route: 048
  3. PRILOSEC [Suspect]
     Dosage: GENERIC
     Route: 048
  4. TRAZODONE [Concomitant]
  5. TEMAZEPAM [Concomitant]

REACTIONS (16)
  - Hand deformity [Unknown]
  - Precancerous cells present [Unknown]
  - Homicidal ideation [Unknown]
  - Barrett^s oesophagus [Unknown]
  - Gastrooesophageal reflux disease [Unknown]
  - Abnormal behaviour [Unknown]
  - Disturbance in social behaviour [Unknown]
  - Blood magnesium decreased [Unknown]
  - Vomiting [Unknown]
  - Aggression [Unknown]
  - Malaise [Unknown]
  - Malaise [Unknown]
  - Drug ineffective [Unknown]
  - Off label use [Unknown]
  - Drug dose omission [Unknown]
  - Intentional drug misuse [Unknown]
